FAERS Safety Report 8512610-0 (Version None)
Quarter: 2012Q2

REPORT INFORMATION
  Report Type: 
  Country: None (occurrence: None)
  Receive Date: 20120405
  Receipt Date: 20080916
  Transmission Date: 20120825
  Serious: Yes (Other)
  Sender: FDA-Public Use
  Company Number: PHEH2008US07181

PATIENT
  Age: 79 Year
  Sex: Female

DRUGS (11)
  1. SPIRIVIA ^BOEHRINGER INGELHEIM^ (TIOTROPIUM BROMIDE) [Concomitant]
  2. ALBUTEROL [Concomitant]
  3. DILTIAZEM [Concomitant]
  4. PRAVASTATIN [Concomitant]
  5. RECLAST [Suspect]
     Indication: LUMBAR VERTEBRAL FRACTURE
     Dosage: 5MG/100ML, INTRAVENOUS
     Route: 042
     Dates: start: 20080604
  6. RECLAST [Suspect]
     Indication: SENILE OSTEOPOROSIS
     Dosage: 5MG/100ML, INTRAVENOUS
     Route: 042
     Dates: start: 20080604
  7. ADVAIR HFA [Concomitant]
  8. CALCIUM [Concomitant]
  9. ASPIRIN [Concomitant]
  10. LISINOPRIL [Concomitant]
  11. GABAPENTIN [Concomitant]

REACTIONS (4)
  - BONE PAIN [None]
  - MYALGIA [None]
  - PAIN [None]
  - MUSCULAR WEAKNESS [None]
